FAERS Safety Report 17043653 (Version 1)
Quarter: 2019Q4

REPORT INFORMATION
  Report Type: Spontaneous
  Country: JP (occurrence: JP)
  Receive Date: 20191118
  Receipt Date: 20191118
  Transmission Date: 20200122
  Serious: Yes (Death, Other)
  Sender: FDA-Public Use
  Company Number: JP-BAYER-2019-204669

PATIENT
  Age: 67 Year
  Sex: Female

DRUGS (1)
  1. NEXAVAR [Suspect]
     Active Substance: SORAFENIB
     Indication: HEPATOCELLULAR CARCINOMA
     Dosage: UNK
     Route: 048
     Dates: start: 20151003, end: 20160530

REACTIONS (5)
  - Alanine aminotransferase increased [None]
  - Blood creatinine increased [None]
  - Prothrombin time prolonged [None]
  - Death [Fatal]
  - Hepatocellular carcinoma [None]
